FAERS Safety Report 19711400 (Version 2)
Quarter: 2021Q4

REPORT INFORMATION
  Report Type: Spontaneous
  Country: AU (occurrence: AU)
  Receive Date: 20210817
  Receipt Date: 20211213
  Transmission Date: 20220303
  Serious: Yes (Hospitalization, Other)
  Sender: FDA-Public Use
  Company Number: AU-PFIZER INC-202101002084

PATIENT
  Age: 45 Year
  Sex: Female

DRUGS (13)
  1. FILGRASTIM [Suspect]
     Active Substance: FILGRASTIM
     Indication: Haematopoietic stem cell mobilisation
     Dosage: 300 UG  ON DAYS 6, 8, 10 AND 12 OF EACH CYCLE
  2. FILGRASTIM [Suspect]
     Active Substance: FILGRASTIM
     Dosage: 300 UG, DAILY FOR 10 DAYS
  3. LENOGRASTIM [Suspect]
     Active Substance: LENOGRASTIM
     Indication: T-cell lymphoma
     Dosage: 300 UG, CYCLIC
     Route: 065
  4. LENOGRASTIM [Suspect]
     Active Substance: LENOGRASTIM
     Indication: Haematopoietic stem cell mobilisation
  5. CYCLOPHOSPHAMIDE [Concomitant]
     Active Substance: CYCLOPHOSPHAMIDE
     Indication: T-cell lymphoma
     Dosage: TWO CYCLES
  6. CYCLOPHOSPHAMIDE [Concomitant]
     Active Substance: CYCLOPHOSPHAMIDE
     Dosage: FOUR FURTHER CYCLES
  7. DOXORUBICIN [Concomitant]
     Active Substance: DOXORUBICIN
     Indication: T-cell lymphoma
     Dosage: TWO CYCLES
  8. DOXORUBICIN [Concomitant]
     Active Substance: DOXORUBICIN
     Dosage: FOUR FURTHER CYCLES
  9. VINCRISTINE [Concomitant]
     Active Substance: VINCRISTINE
     Indication: T-cell lymphoma
     Dosage: TWO CYCLES
  10. VINCRISTINE [Concomitant]
     Active Substance: VINCRISTINE
     Dosage: FOUR FURTHER CYCLES
  11. PREDNISOLONE [Concomitant]
     Active Substance: PREDNISOLONE
     Indication: T-cell lymphoma
     Dosage: TWO CYCLES
  12. PREDNISOLONE [Concomitant]
     Active Substance: PREDNISOLONE
     Dosage: FOUR FURTHER CYCLES
  13. ETOPOSIDE [Concomitant]
     Active Substance: ETOPOSIDE
     Indication: T-cell lymphoma
     Dosage: UNK

REACTIONS (2)
  - Familial haemophagocytic lymphohistiocytosis [Unknown]
  - Condition aggravated [Unknown]
